FAERS Safety Report 7980018-2 (Version None)
Quarter: 2011Q4

REPORT INFORMATION
  Report Type: 
  Country: None (occurrence: None)
  Receive Date: 20111214
  Receipt Date: 20111205
  Transmission Date: 20120403
  Serious: Yes (Other)
  Sender: FDA-Public Use
  Company Number: PHHY2011FR107609

PATIENT
  Sex: Male

DRUGS (1)
  1. EXFORGE HCT [Suspect]
     Indication: HYPERTENSION
     Dosage: 1 DF, QD
     Route: 048
     Dates: start: 20091101, end: 20111101

REACTIONS (7)
  - DRY EYE [None]
  - ANTINUCLEAR ANTIBODY POSITIVE [None]
  - SYSTEMIC LUPUS ERYTHEMATOSUS [None]
  - EPISCLERITIS [None]
  - SCLERITIS [None]
  - HYPERGAMMAGLOBULINAEMIA [None]
  - SJOGREN'S SYNDROME [None]
